FAERS Safety Report 5328842-9 (Version None)
Quarter: 2007Q2

REPORT INFORMATION
  Report Type: 
  Country: None (occurrence: None)
  Receive Date: 20070518
  Receipt Date: 20070511
  Transmission Date: 20071010
  Serious: Yes (Hospitalization)
  Sender: FDA-Public Use
  Company Number: JP-ELI_LILLY_AND_COMPANY-JP200705003234

PATIENT
  Age: 65 Year
  Sex: Female
  Weight: 36.7 kg

DRUGS (10)
  1. GEMZAR [Suspect]
     Indication: PANCREATIC CARCINOMA
     Dosage: 1000 MG, DAILY (1/D)
     Route: 042
     Dates: start: 20070213, end: 20070213
  2. GEMZAR [Suspect]
     Dosage: 800 MG, OTHER
     Route: 042
     Dates: start: 20070220, end: 20070327
  3. GEMZAR [Suspect]
     Dosage: 600 MG, DAILY (1/D)
     Route: 042
     Dates: start: 20070403, end: 20070403
  4. BUSCOPAN [Concomitant]
  5. OMEPRAL [Concomitant]
  6. PROMAC [Concomitant]
  7. BIO THREE [Concomitant]
  8. BERIZYM [Concomitant]
  9. URSO 250 [Concomitant]
  10. POSTERISAN [Concomitant]

REACTIONS (1)
  - LUNG DISORDER [None]
